FAERS Safety Report 6464905-2 (Version None)
Quarter: 2009Q4

REPORT INFORMATION
  Report Type: 
  Country: None (occurrence: None)
  Receive Date: 20091201
  Receipt Date: 20091125
  Transmission Date: 20100525
  Serious: Yes (Other)
  Sender: FDA-Public Use
  Company Number: B0604005A

PATIENT
  Age: 10 Year
  Sex: Male

DRUGS (1)
  1. RELENZA [Suspect]
     Indication: INFLUENZA
     Dosage: 10MG PER DAY
     Route: 055
     Dates: start: 20091110, end: 20091110

REACTIONS (3)
  - NAUSEA [None]
  - PYREXIA [None]
  - VISUAL IMPAIRMENT [None]
